FAERS Safety Report 5930010-4 (Version None)
Quarter: 2008Q4

REPORT INFORMATION
  Report Type: 
  Country: None (occurrence: None)
  Receive Date: 20081024
  Receipt Date: 20081015
  Transmission Date: 20090506
  Serious: Yes (Hospitalization, Other)
  Sender: FDA-Public Use
  Company Number: PT-PFIZER INC-2008082604

PATIENT
  Age: 86 Year
  Sex: Female

DRUGS (2)
  1. CELEBREX [Suspect]
     Indication: PAIN
     Route: 048
     Dates: end: 20081004
  2. TAVANIC [Suspect]
     Indication: URINARY TRACT INFECTION
     Route: 048
     Dates: start: 20080929, end: 20081003

REACTIONS (7)
  - DRY MOUTH [None]
  - HYPERSENSITIVITY [None]
  - HYPOTENSION [None]
  - OEDEMA MOUTH [None]
  - PHARYNGEAL OEDEMA [None]
  - RASH MACULAR [None]
  - SOMNOLENCE [None]
